FAERS Safety Report 18483702 (Version 1)
Quarter: 2020Q4

REPORT INFORMATION
  Report Type: Spontaneous
  Country: JP (occurrence: JP)
  Receive Date: 20201109
  Receipt Date: 20201109
  Transmission Date: 20210114
  Serious: Yes (Other)
  Sender: FDA-Public Use
  Company Number: JP-SA-2020SA052094

PATIENT

DRUGS (1)
  1. DUPIXENT [Suspect]
     Active Substance: DUPILUMAB
     Indication: ASTHMA
     Dosage: QOW
     Route: 058
     Dates: start: 20190711, end: 20200109

REACTIONS (3)
  - Neuropathy peripheral [Unknown]
  - Joint swelling [Unknown]
  - Injection site hypoaesthesia [Recovering/Resolving]

NARRATIVE: CASE EVENT DATE: 201907
